FAERS Safety Report 6971412-7 (Version None)
Quarter: 2010Q3

REPORT INFORMATION
  Report Type: 
  Country: None (occurrence: None)
  Receive Date: 20100908
  Receipt Date: 20100901
  Transmission Date: 20110219
  Serious: Yes (Death)
  Sender: FDA-Public Use
  Company Number: US-CELGENEUS-163-21880-10090170

PATIENT
  Sex: Female

DRUGS (5)
  1. REVLIMID [Suspect]
     Indication: MULTIPLE MYELOMA
     Route: 048
     Dates: start: 20060701
  2. REVLIMID [Suspect]
     Route: 048
     Dates: start: 20070201
  3. REVLIMID [Suspect]
     Route: 065
     Dates: start: 20090701
  4. REVLIMID [Suspect]
     Route: 048
     Dates: start: 20100101, end: 20100201
  5. REVLIMID [Suspect]
     Route: 048
     Dates: start: 20100701

REACTIONS (1)
  - PNEUMONIA [None]
